FAERS Safety Report 21927176 (Version 1)
Quarter: 2023Q1

REPORT INFORMATION
  Report Type: Spontaneous
  Country: US (occurrence: US)
  Receive Date: 20230130
  Receipt Date: 20230130
  Transmission Date: 20230418
  Serious: Yes (Death)
  Sender: FDA-Public Use
  Company Number: US-PERRIGO-23US001329

PATIENT
  Age: 60 Year
  Sex: Female

DRUGS (7)
  1. IBUPROFEN [Suspect]
     Active Substance: IBUPROFEN
     Indication: Suspected suicide
     Dosage: UNK
     Route: 048
  2. AMLODIPINE [Suspect]
     Active Substance: AMLODIPINE BESYLATE
     Indication: Suspected suicide
     Dosage: UNK
     Route: 048
  3. QUETIAPINE [Suspect]
     Active Substance: QUETIAPINE
     Indication: Suspected suicide
     Dosage: UNK
     Route: 048
  4. DIAZEPAM [Suspect]
     Active Substance: DIAZEPAM
     Indication: Suspected suicide
     Dosage: UNK
     Route: 048
  5. GABAPENTIN [Suspect]
     Active Substance: GABAPENTIN
     Indication: Suspected suicide
     Dosage: UNK
     Route: 048
  6. METOCLOPRAMIDE [Suspect]
     Active Substance: METOCLOPRAMIDE
     Indication: Suspected suicide
     Dosage: UNK
     Route: 048
  7. BUTALBITAL [Suspect]
     Active Substance: BUTALBITAL
     Indication: Suspected suicide
     Dosage: UNK
     Route: 048

REACTIONS (1)
  - Exposure to toxic agent [Fatal]

NARRATIVE: CASE EVENT DATE: 20210101
